FAERS Safety Report 5739647-9 (Version None)
Quarter: 2008Q2

REPORT INFORMATION
  Report Type: 
  Country: None (occurrence: None)
  Receive Date: 20080513
  Receipt Date: 20071206
  Transmission Date: 20081010
  Serious: Yes (Death, Life-Threatening)
  Sender: FDA-Public Use
  Company Number: 07GB001039

PATIENT
  Age: 75 Year
  Sex: Female

DRUGS (7)
  1. PAROXETINE HCL [Suspect]
     Indication: DEPRESSION
     Dosage: 20 MG, QD, ORAL
     Route: 048
     Dates: start: 20060622, end: 20060823
  2. FUROSEMIDE [Concomitant]
  3. QUININE SULFATE (QUININE SULFATE) [Concomitant]
  4. SERETIDE (FLUTICASONE PRIPIONATE, SALMETEROL XINAFOATE) [Concomitant]
  5. SPIRIVA [Concomitant]
  6. TRAMADOL HCL [Concomitant]
  7. VENTOLIN /00139501/ (SALBUTAMOL) [Concomitant]

REACTIONS (3)
  - COMA [None]
  - HEPATIC FAILURE [None]
  - SOMNOLENCE [None]
